FAERS Safety Report 25570420 (Version 1)
Quarter: 2025Q3

REPORT INFORMATION
  Report Type: Report from Study
  Country: PK (occurrence: PK)
  Receive Date: 20250717
  Receipt Date: 20250717
  Transmission Date: 20251021
  Serious: Yes (Death)
  Sender: ROCHE
  Company Number: PK-ROCHE-10000336390

PATIENT
  Age: 42 Year
  Sex: Female

DRUGS (1)
  1. AVASTIN [Suspect]
     Active Substance: BEVACIZUMAB
     Indication: Cervix carcinoma
     Route: 042
     Dates: start: 20241217, end: 20250415

REACTIONS (3)
  - Disease progression [Fatal]
  - Asthenia [Fatal]
  - Pyrexia [Fatal]

NARRATIVE: CASE EVENT DATE: 20250620
